FAERS Safety Report 13407105 (Version 2)
Quarter: 2017Q2

REPORT INFORMATION
  Report Type: Report from Study
  Country: CO (occurrence: CO)
  Receive Date: 20170405
  Receipt Date: 20170419
  Transmission Date: 20170830
  Serious: Yes (Other)
  Sender: FDA-Public Use
  Company Number: PHHY2017CO050277

PATIENT
  Age: 69 Year
  Sex: Female
  Weight: 61 kg

DRUGS (4)
  1. ENTRESTO [Suspect]
     Active Substance: SACUBITRIL\VALSARTAN
     Indication: CARDIAC FAILURE
     Dosage: 50 MG, Q12H
     Route: 048
     Dates: start: 20170220, end: 20170410
  2. PROCORALAN [Concomitant]
     Active Substance: IVABRADINE
     Indication: CARDIAC FAILURE
     Dosage: UNK
     Route: 065
  3. ENTRESTO [Suspect]
     Active Substance: SACUBITRIL\VALSARTAN
     Dosage: 100 MG, BID
     Route: 048
  4. NABILA [Concomitant]
     Indication: CARDIAC FAILURE
     Dosage: UNK
     Route: 065

REACTIONS (4)
  - Asphyxia [Unknown]
  - Pain in extremity [Unknown]
  - Head discomfort [Unknown]
  - Cardiac disorder [Unknown]

NARRATIVE: CASE EVENT DATE: 20170330
